FAERS Safety Report 5454504-3 (Version None)
Quarter: 2007Q3

REPORT INFORMATION
  Report Type: 
  Country: None (occurrence: None)
  Receive Date: 20070917
  Receipt Date: 20070905
  Transmission Date: 20080115
  Serious: Yes (Other)
  Sender: FDA-Public Use
  Company Number: US-PFIZER INC-2007074856

PATIENT
  Sex: Female
  Weight: 68 kg

DRUGS (11)
  1. CHANTIX [Suspect]
     Indication: SMOKING CESSATION THERAPY
     Dosage: FREQ:EVERY DAY
  2. ELAVIL [Interacting]
     Indication: DEPRESSION
     Dosage: DAILY DOSE:150MG-FREQ:EVERY DAY
  3. EFFEXOR [Interacting]
     Indication: DEPRESSION
     Dosage: DAILY DOSE:225MG-FREQ:EVERY DAY
  4. MIRTAZAPINE [Interacting]
     Indication: DEPRESSION
     Dosage: DAILY DOSE:45MG-FREQ:EVERY DAY
  5. SEROQUEL [Interacting]
     Indication: DEPRESSION
     Dosage: DAILY DOSE:400MG-FREQ:EVERY DAY
  6. ZOCOR [Concomitant]
  7. MAXZIDE [Concomitant]
  8. NORVASC [Concomitant]
  9. FOSAMAX [Concomitant]
  10. PREMPRO [Concomitant]
  11. SYNTHROID [Concomitant]

REACTIONS (2)
  - DEPRESSION [None]
  - DRUG INTERACTION [None]
